FAERS Safety Report 21576431 (Version 1)
Quarter: 2022Q4

REPORT INFORMATION
  Report Type: Spontaneous
  Country: BG (occurrence: BG)
  Receive Date: 20221110
  Receipt Date: 20221110
  Transmission Date: 20230113
  Serious: Yes (Other)
  Sender: FDA-Public Use
  Company Number: BG-BRISTOL-MYERS SQUIBB COMPANY-2022-131628

PATIENT
  Age: 51 Year
  Sex: Female

DRUGS (4)
  1. NIVOLUMAB [Suspect]
     Active Substance: NIVOLUMAB
     Indication: Malignant melanoma
     Dosage: 480 MG
     Route: 065
     Dates: start: 20210501
  2. NIVOLUMAB [Suspect]
     Active Substance: NIVOLUMAB
     Route: 065
     Dates: start: 202109
  3. NIVOLUMAB [Suspect]
     Active Substance: NIVOLUMAB
     Route: 065
     Dates: start: 202203
  4. IPILIMUMAB [Suspect]
     Active Substance: IPILIMUMAB
     Indication: Malignant melanoma
     Dosage: 480 MG
     Route: 065
     Dates: start: 20210501, end: 202109

REACTIONS (12)
  - Immune-mediated endocrinopathy [Unknown]
  - Fatigue [Unknown]
  - Nausea [Unknown]
  - Decreased appetite [Unknown]
  - Weight decreased [Unknown]
  - Hypotension [Unknown]
  - Skin hyperpigmentation [Unknown]
  - Cortisol decreased [Unknown]
  - Blood sodium increased [Unknown]
  - Blood potassium increased [Unknown]
  - Addison^s disease [Unknown]
  - Scar [Unknown]

NARRATIVE: CASE EVENT DATE: 20210601
